FAERS Safety Report 9584950 (Version 1)
Quarter: 2013Q4

REPORT INFORMATION
  Report Type: Spontaneous
  Country: US (occurrence: US)
  Receive Date: 20131002
  Receipt Date: 20131002
  Transmission Date: 20140711
  Serious: No
  Sender: FDA-Public Use
  Company Number: US-AMGEN-USASP2013061859

PATIENT
  Age: 46 Year
  Sex: Female

DRUGS (5)
  1. ENBREL [Suspect]
     Indication: PRODUCT USED FOR UNKNOWN INDICATION
     Dosage: 50 MG, TWICE A WEEK
     Route: 058
  2. VENLAFAXINE [Concomitant]
     Dosage: 37.5 MG, UNK
  3. TURMERIC                           /01079602/ [Concomitant]
     Dosage: 450 MG, UNK
  4. FISH OIL [Concomitant]
     Dosage: UNK
  5. ALLERGY MEDICATION [Concomitant]
     Dosage: UNK

REACTIONS (2)
  - Drug effect incomplete [Unknown]
  - Psoriasis [Unknown]
